FAERS Safety Report 10397156 (Version 1)
Quarter: 2014Q3

REPORT INFORMATION
  Report Type: Spontaneous
  Country: US (occurrence: US)
  Receive Date: 20140820
  Receipt Date: 20140820
  Transmission Date: 20150326
  Serious: Yes (Hospitalization, Other)
  Sender: FDA-Public Use
  Company Number: US-TEVA-502060USA

PATIENT
  Age: 67 Year
  Sex: Male

DRUGS (7)
  1. DEPAKOTE [Concomitant]
     Active Substance: DIVALPROEX SODIUM
     Dosage: 1.25G DAILY
     Route: 048
  2. TRAMADOL [Interacting]
     Active Substance: TRAMADOL
     Indication: ANALGESIC THERAPY
     Route: 048
  3. CLOZAPINE. [Concomitant]
     Active Substance: CLOZAPINE
     Dosage: 25MG DAILY
     Route: 048
  4. AZILECT [Suspect]
     Active Substance: RASAGILINE MESYLATE
     Dosage: 1 MG DAILY
  5. ZIPRASIDONE [Interacting]
     Active Substance: ZIPRASIDONE
     Indication: HALLUCINATION
     Dosage: 20MG DAILY
     Route: 048
  6. AMANTADINE [Concomitant]
     Active Substance: AMANTADINE
     Dosage: 200MG DAILY
     Route: 048
  7. LEVODOPA, CARBIDOPA [Concomitant]
     Active Substance: CARBIDOPA\LEVODOPA
     Dosage: 25/100MG 4 TIMES DAILY
     Route: 065

REACTIONS (4)
  - Rhabdomyolysis [Unknown]
  - Drug interaction [Unknown]
  - Serotonin syndrome [Unknown]
  - Renal failure acute [Unknown]
